FAERS Safety Report 20929419 (Version 1)
Quarter: 2022Q2

REPORT INFORMATION
  Report Type: Spontaneous
  Country: US (occurrence: US)
  Receive Date: 20220608
  Receipt Date: 20220608
  Transmission Date: 20220721
  Serious: Yes (Other)
  Sender: FDA-Public Use
  Company Number: US-SUN PHARMACEUTICAL INDUSTRIES LTD-2022R1-339335

PATIENT
  Age: 80 Year
  Sex: Female

DRUGS (4)
  1. IMIPRAMINE [Suspect]
     Active Substance: IMIPRAMINE
     Indication: Major depression
     Dosage: 200 MILLIGRAM, DAILY
     Route: 065
  2. IMIPRAMINE [Suspect]
     Active Substance: IMIPRAMINE
     Indication: Generalised anxiety disorder
  3. DIAZEPAM [Concomitant]
     Active Substance: DIAZEPAM
     Indication: Major depression
     Dosage: 5 MILLIGRAM, DAILY
     Route: 065
  4. DIAZEPAM [Concomitant]
     Active Substance: DIAZEPAM
     Indication: Generalised anxiety disorder

REACTIONS (3)
  - Orthostatic hypotension [Unknown]
  - Skin hyperpigmentation [Recovering/Resolving]
  - Iris hyperpigmentation [Recovering/Resolving]
